FAERS Safety Report 21752799 (Version 15)
Quarter: 2025Q1

REPORT INFORMATION
  Report Type: Report from Study
  Country: US (occurrence: US)
  Receive Date: 20221220
  Receipt Date: 20250310
  Transmission Date: 20250409
  Serious: Yes (Hospitalization, Other)
  Sender: TAKEDA
  Company Number: US-TAKEDA-2021TUS046872

PATIENT
  Sex: Female
  Weight: 45 kg

DRUGS (24)
  1. TEDUGLUTIDE [Suspect]
     Active Substance: TEDUGLUTIDE
     Indication: Short-bowel syndrome
     Dosage: 2.4 MILLIGRAM, QD
  2. TEDUGLUTIDE [Suspect]
     Active Substance: TEDUGLUTIDE
     Dosage: 2.5 MILLIGRAM, QD
  3. TEDUGLUTIDE [Suspect]
     Active Substance: TEDUGLUTIDE
     Dosage: 2 MILLIGRAM, QD
  4. TEDUGLUTIDE [Suspect]
     Active Substance: TEDUGLUTIDE
     Dosage: 2.5 MILLIGRAM, QD
  5. TEDUGLUTIDE [Suspect]
     Active Substance: TEDUGLUTIDE
     Dosage: 2.5 MILLIGRAM, QD
  6. TEDUGLUTIDE [Suspect]
     Active Substance: TEDUGLUTIDE
     Dosage: 2.5 MILLIGRAM, QD
  7. TEDUGLUTIDE [Suspect]
     Active Substance: TEDUGLUTIDE
     Dosage: 2.5 MILLIGRAM, QD
  8. TEDUGLUTIDE [Suspect]
     Active Substance: TEDUGLUTIDE
     Dosage: 2.5 MILLIGRAM, QD
  9. TEDUGLUTIDE [Suspect]
     Active Substance: TEDUGLUTIDE
     Dosage: 2.5 MILLIGRAM, QD
  10. SALINE [Concomitant]
     Active Substance: SODIUM CHLORIDE
  11. LOPERAMIDE [Concomitant]
     Active Substance: LOPERAMIDE
  12. MAGNESIUM OXIDE [Concomitant]
     Active Substance: MAGNESIUM OXIDE
  13. OLANZAPINE [Concomitant]
     Active Substance: OLANZAPINE
  14. OMEPRAZOLE AND SODIUM BICARBONATE [Concomitant]
     Active Substance: OMEPRAZOLE\SODIUM BICARBONATE
  15. MIRTAZAPINE [Concomitant]
     Active Substance: MIRTAZAPINE
  16. DRONABINOL [Concomitant]
     Active Substance: DRONABINOL
  17. ROPINIROLE [Concomitant]
     Active Substance: ROPINIROLE
  18. CREON [Concomitant]
     Active Substance: PANCRELIPASE AMYLASE\PANCRELIPASE LIPASE\PANCRELIPASE PROTEASE
  19. ELIQUIS [Concomitant]
     Active Substance: APIXABAN
  20. OPIUM TINCTURE [Concomitant]
     Active Substance: MORPHINE
  21. BACTRIM [Concomitant]
     Active Substance: SULFAMETHOXAZOLE\TRIMETHOPRIM
  22. BENZONATATE [Concomitant]
     Active Substance: BENZONATATE
  23. METHOCARBAMOL [Concomitant]
     Active Substance: METHOCARBAMOL
  24. METHYLPREDNISOLONE [Concomitant]
     Active Substance: METHYLPREDNISOLONE

REACTIONS (19)
  - Infection [Unknown]
  - Vascular device infection [Not Recovered/Not Resolved]
  - Intestinal obstruction [Unknown]
  - Gastrointestinal inflammation [Unknown]
  - Weight decreased [Unknown]
  - Ear infection [Unknown]
  - Pain [Unknown]
  - Drug ineffective [Unknown]
  - Malaise [Unknown]
  - Dehydration [Unknown]
  - Blood magnesium abnormal [Unknown]
  - COVID-19 [Unknown]
  - Gastritis [Unknown]
  - Faeces discoloured [Unknown]
  - Wrong technique in product usage process [Unknown]
  - Illness [Unknown]
  - Product dose omission issue [Unknown]
  - Decreased appetite [Unknown]
  - Gastrointestinal stoma complication [Unknown]
